FAERS Safety Report 4304211-5 (Version None)
Quarter: 2004Q1

REPORT INFORMATION
  Report Type: 
  Country: None (occurrence: None)
  Receive Date: 20040224
  Receipt Date: 20040210
  Transmission Date: 20041129
  Serious: Yes (Other)
  Sender: FDA-Public Use
  Company Number: US-JNJFOC-20031002780

PATIENT
  Age: 57 Year
  Sex: Male
  Weight: 86.1834 kg

DRUGS (8)
  1. REMICADE [Suspect]
     Indication: CROHN'S DISEASE
     Dosage: 1 IN 1 DAY, INTRAVENOUS
     Route: 042
     Dates: start: 20000719
  2. NEXIUM (ESOMEPRAZOLE) CD [Concomitant]
  3. FOLIC ACID [Concomitant]
  4. QUESTRAN [Concomitant]
  5. HCTZ (HYDROCHLORTHIAZIDE) [Concomitant]
  6. ZOCOR [Concomitant]
  7. TYLENOL [Concomitant]
  8. IMMODIUM (LOPERAMIDE HYDROCHLORIDE) [Concomitant]

REACTIONS (4)
  - ARTHRITIS BACTERIAL [None]
  - RHEUMATOID ARTHRITIS [None]
  - SCOLIOSIS [None]
  - TUBERCULOSIS [None]
